FAERS Safety Report 4938211-9 (Version None)
Quarter: 2006Q1

REPORT INFORMATION
  Report Type: 
  Country: None (occurrence: None)
  Receive Date: 20060306
  Receipt Date: 20060227
  Transmission Date: 20060701
  Serious: Yes (Death, Other)
  Sender: FDA-Public Use
  Company Number: USA-2006-0023720

PATIENT

DRUGS (1)
  1. HYDROMORPHONE HCL [Suspect]
     Indication: PAIN
     Dosage: SEE TEXT

REACTIONS (2)
  - RESPIRATORY ARREST [None]
  - WRONG DRUG ADMINISTERED [None]
